FAERS Safety Report 19187898 (Version 2)
Quarter: 2021Q2

REPORT INFORMATION
  Report Type: Spontaneous
  Country: US (occurrence: US)
  Receive Date: 20210428
  Receipt Date: 20210514
  Transmission Date: 20210717
  Serious: Yes (Other)
  Sender: FDA-Public Use
  Company Number: US-BLUEPRINT MEDICINES CORPORATION-SP-US-2021-000558

PATIENT
  Sex: Male

DRUGS (2)
  1. AYVAKIT [Suspect]
     Active Substance: AVAPRITINIB
     Route: 048
     Dates: start: 20200904
  2. AYVAKIT [Suspect]
     Active Substance: AVAPRITINIB
     Indication: GASTROINTESTINAL STROMAL TUMOUR
     Route: 048
     Dates: start: 20191015

REACTIONS (8)
  - Tooth fracture [Unknown]
  - Vomiting [Unknown]
  - Neoplasm malignant [Unknown]
  - Dizziness [Unknown]
  - Procedural complication [Unknown]
  - Neck mass [Unknown]
  - Cough [Unknown]
  - Drug ineffective [Unknown]
